FAERS Safety Report 8261555-2 (Version None)
Quarter: 2012Q2

REPORT INFORMATION
  Report Type: 
  Country: None (occurrence: None)
  Receive Date: 20120405
  Receipt Date: 20120328
  Transmission Date: 20120825
  Serious: Yes (Life-Threatening)
  Sender: FDA-Public Use
  Company Number: US-BAYER-2012-030052

PATIENT
  Age: 56 Year
  Sex: Female

DRUGS (4)
  1. NIFEDIPINE [Suspect]
     Route: 048
  2. CITALOPRAM HYDROBROMIDE [Suspect]
     Route: 048
  3. METOPROLOL TARTRATE [Suspect]
     Route: 048
  4. AMITRIPTYLINE HCL [Suspect]

REACTIONS (1)
  - SHOCK [None]
